FAERS Safety Report 11976465 (Version 1)
Quarter: 2016Q1

REPORT INFORMATION
  Report Type: Spontaneous
  Country: US (occurrence: US)
  Receive Date: 20160129
  Receipt Date: 20160129
  Transmission Date: 20160526
  Serious: Yes (Hospitalization)
  Sender: FDA-Public Use
  Company Number: US-ASTRAZENECA-2008BM09323

PATIENT
  Age: 637 Month
  Sex: Male
  Weight: 163.3 kg

DRUGS (26)
  1. GLUCOPHAGE [Concomitant]
     Active Substance: METFORMIN HYDROCHLORIDE
     Indication: TYPE 2 DIABETES MELLITUS
     Route: 048
  2. AVAPRO [Concomitant]
     Active Substance: IRBESARTAN
     Indication: PROPHYLAXIS
     Route: 048
     Dates: start: 2003
  3. AVAPRO [Concomitant]
     Active Substance: IRBESARTAN
     Indication: PROPHYLAXIS
     Route: 048
  4. HYDROCHLOROTHIAZIDE. [Concomitant]
     Active Substance: HYDROCHLOROTHIAZIDE
     Indication: PROPHYLAXIS
     Route: 048
     Dates: start: 2003
  5. HUMULIN U [Concomitant]
     Active Substance: INSULIN HUMAN
     Indication: TYPE 2 DIABETES MELLITUS
  6. MULTIVITAMIN [Concomitant]
     Active Substance: VITAMINS
     Dosage: DAILY
  7. COQ10 [Concomitant]
     Active Substance: UBIDECARENONE
  8. BYDUREON [Suspect]
     Active Substance: EXENATIDE
     Indication: TYPE 2 DIABETES MELLITUS
     Route: 058
     Dates: start: 20160118
  9. CIPRO [Concomitant]
     Active Substance: CIPROFLOXACIN HYDROCHLORIDE
     Indication: INFECTION
     Route: 048
     Dates: start: 200807
  10. PROBIOTIC [Concomitant]
     Active Substance: PROBIOTICS NOS
     Dosage: DAILY
  11. METOPROLOL TARTRATE. [Suspect]
     Active Substance: METOPROLOL TARTRATE
     Route: 065
  12. LANTUS [Concomitant]
     Active Substance: INSULIN GLARGINE
     Indication: TYPE 2 DIABETES MELLITUS
     Route: 058
     Dates: start: 2005
  13. SIMVASTATIN. [Concomitant]
     Active Substance: SIMVASTATIN
     Indication: BLOOD CHOLESTEROL
     Route: 048
  14. BYETTA [Suspect]
     Active Substance: EXENATIDE
     Indication: TYPE 2 DIABETES MELLITUS
     Route: 058
     Dates: end: 20160117
  15. METOPROLOL TARTRATE. [Suspect]
     Active Substance: METOPROLOL TARTRATE
     Route: 065
  16. ZYRTEC [Concomitant]
     Active Substance: CETIRIZINE HYDROCHLORIDE
     Indication: HYPERSENSITIVITY
     Route: 048
     Dates: start: 2006
  17. BYETTA [Suspect]
     Active Substance: EXENATIDE
     Indication: TYPE 2 DIABETES MELLITUS
     Route: 058
     Dates: start: 200803
  18. ASA [Concomitant]
     Active Substance: ASPIRIN
     Indication: PROPHYLAXIS
     Route: 048
  19. VITAMIN D [Concomitant]
     Active Substance: CHOLECALCIFEROL
  20. FUROSEMIDE. [Concomitant]
     Active Substance: FUROSEMIDE
  21. FUROSEMIDE. [Concomitant]
     Active Substance: FUROSEMIDE
  22. ATORVASTATIN [Concomitant]
     Active Substance: ATORVASTATIN
  23. FOLIC ACID. [Concomitant]
     Active Substance: FOLIC ACID
  24. HUMALOG [Concomitant]
     Active Substance: INSULIN LISPRO
     Indication: TYPE 2 DIABETES MELLITUS
     Dosage: AS REQUIRED
     Route: 058
     Dates: start: 2003
  25. GABAPENTIN. [Concomitant]
     Active Substance: GABAPENTIN
  26. XARELTO [Concomitant]
     Active Substance: RIVAROXABAN

REACTIONS (7)
  - Osteomyelitis [Recovered/Resolved]
  - Neuropathy peripheral [Unknown]
  - Weight decreased [Unknown]
  - Product quality issue [Unknown]
  - Impaired healing [Recovered/Resolved]
  - Hyperaesthesia [Unknown]
  - Limb injury [Recovered/Resolved]

NARRATIVE: CASE EVENT DATE: 200806
